FAERS Safety Report 16057178 (Version 2)
Quarter: 2019Q3

REPORT INFORMATION
  Report Type: Spontaneous
  Country: JP (occurrence: JP)
  Receive Date: 20190311
  Receipt Date: 20190701
  Transmission Date: 20191004
  Serious: Yes (Life-Threatening, Other)
  Sender: FDA-Public Use
  Company Number: JP-PFIZER INC-2018467918

PATIENT
  Age: 59 Year
  Sex: Female

DRUGS (7)
  1. IBRANCE [Suspect]
     Active Substance: PALBOCICLIB
     Indication: BREAST CANCER
     Dosage: 125 MG ONCE DAILY
     Route: 048
     Dates: start: 20180921, end: 20180927
  2. IBRANCE [Suspect]
     Active Substance: PALBOCICLIB
     Dosage: 75 MG, 1X/DAY
     Route: 048
     Dates: start: 20181025, end: 20181104
  3. IBRANCE [Suspect]
     Active Substance: PALBOCICLIB
     Dosage: 100 MG ONCE DAILY
     Route: 048
     Dates: start: 20180928, end: 20180929
  4. LETROZOLE. [Concomitant]
     Active Substance: LETROZOLE
     Indication: BREAST CANCER
     Dosage: 2.5 MG, 1X/DAY
     Route: 048
     Dates: start: 20180919, end: 20181112
  5. LAC-B GRANULAR POWDER N [Concomitant]
     Dosage: 3 G, 3X/DAY
     Route: 048
     Dates: start: 20180920, end: 20181024
  6. IBRANCE [Suspect]
     Active Substance: PALBOCICLIB
     Dosage: 75 MG ONCE DAILY
     Route: 048
     Dates: start: 20180930, end: 20181002
  7. PRAMIEL [METOCLOPRAMIDE HYDROCHLORIDE] [Concomitant]
     Dosage: 5 MG, 3X/DAY
     Route: 048
     Dates: start: 20180920, end: 20181024

REACTIONS (4)
  - Platelet count decreased [Recovering/Resolving]
  - Neutrophil count decreased [Recovered/Resolved]
  - White blood cell count decreased [Recovering/Resolving]
  - Neutrophil count increased [Not Recovered/Not Resolved]

NARRATIVE: CASE EVENT DATE: 20180929
